FAERS Safety Report 18851508 (Version 1)
Quarter: 2021Q1

REPORT INFORMATION
  Report Type: Spontaneous
  Country: US (occurrence: US)
  Receive Date: 20210204
  Receipt Date: 20210204
  Transmission Date: 20210420
  Serious: Yes (Death)
  Sender: FDA-Public Use
  Company Number: None

PATIENT
  Age: 91 Year
  Sex: Female
  Weight: 49.05 kg

DRUGS (1)
  1. BAMLANIVIMAB. [Suspect]
     Active Substance: BAMLANIVIMAB
     Route: 041
     Dates: start: 20210129, end: 20210129

REACTIONS (2)
  - Altered state of consciousness [None]
  - Dependence on oxygen therapy [None]

NARRATIVE: CASE EVENT DATE: 20210130
